FAERS Safety Report 9013863 (Version 2)
Quarter: 2013Q1

REPORT INFORMATION
  Report Type: Report from Study
  Country: US (occurrence: US)
  Receive Date: 20130115
  Receipt Date: 20130315
  Transmission Date: 20140127
  Serious: No
  Sender: FDA-Public Use
  Company Number: US-VERTEX PHARMACEUTICALS INC.-2013-000575

PATIENT
  Sex: Male
  Weight: 57 kg

DRUGS (3)
  1. VX-950 (TELAPREVIR) [Suspect]
     Indication: HEPATITIS C
     Dosage: 750 MG, TID
     Route: 048
     Dates: start: 20120709
  2. PHENERGAN                          /00033001/ [Concomitant]
     Dosage: 25 MG
  3. SUBOXONE [Concomitant]
     Dosage: 8-2 MG

REACTIONS (6)
  - Vision blurred [Unknown]
  - Hypoaesthesia [Unknown]
  - Chapped lips [Unknown]
  - Nausea [Unknown]
  - Anaemia [Unknown]
  - Rash [Unknown]
